FAERS Safety Report 5110963-7 (Version None)
Quarter: 2006Q3

REPORT INFORMATION
  Report Type: 
  Country: None (occurrence: None)
  Receive Date: 20060922
  Receipt Date: 20060914
  Transmission Date: 20061208
  Serious: Yes (Hospitalization)
  Sender: FDA-Public Use
  Company Number: JP-JNJFOC-20060305839

PATIENT
  Sex: Female
  Weight: 57 kg

DRUGS (9)
  1. DOXIL [Suspect]
     Indication: OVARIAN CANCER
     Route: 042
  2. PAXIL [Concomitant]
     Indication: ADJUSTMENT DISORDER
     Route: 048
  3. AMOBAN [Concomitant]
     Indication: INSOMNIA
     Route: 048
  4. HICEE [Concomitant]
     Indication: PROPHYLAXIS
     Route: 048
  5. DEPAS [Concomitant]
     Indication: INSOMNIA
     Route: 048
  6. RINDERON-VG [Concomitant]
     Indication: PALMAR-PLANTAR ERYTHRODYSAESTHESIA SYNDROME
     Route: 003
  7. LOXONIN [Concomitant]
     Indication: PAIN IN EXTREMITY
     Route: 048
  8. DASEN [Concomitant]
     Indication: LYMPHOEDEMA
     Route: 048
  9. MUCOSTA [Concomitant]
     Indication: PROPHYLAXIS
     Route: 048

REACTIONS (2)
  - DEEP VEIN THROMBOSIS [None]
  - PULMONARY EMBOLISM [None]
